FAERS Safety Report 23861638 (Version 2)
Quarter: 2024Q2

REPORT INFORMATION
  Report Type: Spontaneous
  Country: US (occurrence: US)
  Receive Date: 20240516
  Receipt Date: 20240520
  Transmission Date: 20240716
  Serious: No
  Sender: FDA-Public Use
  Company Number: US-AMGEN-USASP2024085851

PATIENT
  Age: 49 Year
  Sex: Male

DRUGS (2)
  1. CORLANOR [Suspect]
     Active Substance: IVABRADINE HYDROCHLORIDE
     Indication: Dilated cardiomyopathy
     Dosage: 2.5 MILLIGRAM, BID
     Route: 048
  2. CORLANOR [Suspect]
     Active Substance: IVABRADINE HYDROCHLORIDE
     Indication: Off label use
     Dosage: 5 MILLIGRAM, BID
     Route: 048

REACTIONS (4)
  - Ophthalmic migraine [Unknown]
  - Vision blurred [Unknown]
  - Photopsia [Unknown]
  - Off label use [Unknown]
